FAERS Safety Report 23489879 (Version 1)
Quarter: 2024Q1

REPORT INFORMATION
  Report Type: Spontaneous
  Country: US (occurrence: None)
  Receive Date: 20240206
  Receipt Date: 20240206
  Transmission Date: 20240409
  Serious: No
  Sender: FDA-Public Use
  Company Number: US-ROCHE-3391619

PATIENT
  Sex: Female

DRUGS (19)
  1. XOLAIR [Suspect]
     Active Substance: OMALIZUMAB
     Indication: Asthma
     Route: 058
  2. XOLAIR [Suspect]
     Active Substance: OMALIZUMAB
  3. XOLAIR [Suspect]
     Active Substance: OMALIZUMAB
  4. BUTALBITAL [Concomitant]
     Active Substance: BUTALBITAL
  5. ACETAMINOPHEN [Concomitant]
     Active Substance: ACETAMINOPHEN
  6. FLOVENT HFA [Concomitant]
     Active Substance: FLUTICASONE PROPIONATE
  7. TEMAZEPAM [Concomitant]
     Active Substance: TEMAZEPAM
  8. FLUTICASONE [Concomitant]
     Active Substance: FLUTICASONE
  9. PROPIONATE [Concomitant]
  10. ENDOCET [Concomitant]
     Active Substance: ACETAMINOPHEN\OXYCODONE HYDROCHLORIDE
  11. JANUVIA [Concomitant]
     Active Substance: SITAGLIPTIN PHOSPHATE
  12. EPIPEN [Concomitant]
     Active Substance: EPINEPHRINE
  13. PIROXICAM [Concomitant]
     Active Substance: PIROXICAM
  14. LISINOPRIL [Concomitant]
     Active Substance: LISINOPRIL
  15. LORAZEPAM [Concomitant]
     Active Substance: LORAZEPAM
  16. TEMAZEPAM [Concomitant]
     Active Substance: TEMAZEPAM
  17. BUDESONIDE [Concomitant]
     Active Substance: BUDESONIDE
  18. ATORVASTATIN [Concomitant]
     Active Substance: ATORVASTATIN
  19. ROXICET [Concomitant]
     Active Substance: ACETAMINOPHEN\OXYCODONE HYDROCHLORIDE

REACTIONS (2)
  - Drug ineffective [Unknown]
  - Dyspnoea [Unknown]
